FAERS Safety Report 7914690-X (Version None)
Quarter: 2011Q4

REPORT INFORMATION
  Report Type: 
  Country: None (occurrence: None)
  Receive Date: 20111115
  Receipt Date: 20111108
  Transmission Date: 20120403
  Serious: Yes (Death, Congenital Anomaly)
  Sender: FDA-Public Use
  Company Number: PHHY2011DK098491

PATIENT
  Sex: Male

DRUGS (2)
  1. TEGRETOL [Suspect]
     Indication: EPILEPSY
     Dosage: DOSIS PR. DGN: 200 MG + 200 MG + 400 MG
     Route: 064
  2. CLONAZEPAM [Concomitant]
     Dosage: UNK UKN, UNK
     Route: 064

REACTIONS (10)
  - CLEFT PALATE [None]
  - HEART DISEASE CONGENITAL [None]
  - UNIVENTRICULAR HEART [None]
  - PULMONARY DYSMATURITY SYNDROME [None]
  - ATRIAL SEPTAL DEFECT [None]
  - FOETAL EXPOSURE DURING PREGNANCY [None]
  - TALIPES [None]
  - CONGENITAL AORTIC ANOMALY [None]
  - BRONCHOPNEUMONIA [None]
  - CONGENITAL HIP DEFORMITY [None]
